FAERS Safety Report 12976039 (Version 3)
Quarter: 2016Q4

REPORT INFORMATION
  Report Type: Spontaneous
  Country: CA (occurrence: CA)
  Receive Date: 20161126
  Receipt Date: 20161208
  Transmission Date: 20170207
  Serious: Yes (Other)
  Sender: FDA-Public Use
  Company Number: CA-JNJFOC-20161006821

PATIENT
  Age: 59 Year
  Sex: Male
  Weight: 73.94 kg

DRUGS (6)
  1. ROGAINE [Suspect]
     Active Substance: MINOXIDIL
     Indication: ACCIDENTAL EXPOSURE TO PRODUCT
     Route: 047
  2. ROGAINE [Suspect]
     Active Substance: MINOXIDIL
     Indication: ALOPECIA
     Route: 047
  3. ROGAINE [Suspect]
     Active Substance: MINOXIDIL
     Indication: ALOPECIA
     Dosage: 1 PUMP
     Route: 047
     Dates: start: 20160902, end: 201609
  4. ROGAINE [Suspect]
     Active Substance: MINOXIDIL
     Indication: ACCIDENTAL EXPOSURE TO PRODUCT
     Dosage: 1 PUMP
     Route: 047
     Dates: start: 20160902, end: 201609
  5. ROGAINE [Suspect]
     Active Substance: MINOXIDIL
     Indication: ALOPECIA
     Dosage: ONLY ONCE AFTER GETTING HEADACHE FROM 2 TIMES PER DAY. ALSO ONCE EVERY 2 DAYS (SMALLER DOSE)
     Route: 047
     Dates: start: 201609
  6. ROGAINE [Suspect]
     Active Substance: MINOXIDIL
     Indication: ACCIDENTAL EXPOSURE TO PRODUCT
     Dosage: ONLY ONCE AFTER GETTING HEADACHE FROM 2 TIMES PER DAY. ALSO ONCE EVERY 2 DAYS (SMALLER DOSE)
     Route: 047
     Dates: start: 201609

REACTIONS (9)
  - Keratitis [Recovering/Resolving]
  - Dacryostenosis acquired [Not Recovered/Not Resolved]
  - Headache [Not Recovered/Not Resolved]
  - Eye swelling [Not Recovered/Not Resolved]
  - Incorrect dose administered [Not Recovered/Not Resolved]
  - Cough [Not Recovered/Not Resolved]
  - Inappropriate schedule of drug administration [Not Recovered/Not Resolved]
  - Accidental exposure to product [Not Recovered/Not Resolved]
  - Skin discolouration [Unknown]

NARRATIVE: CASE EVENT DATE: 2016
